FAERS Safety Report 10907082 (Version 1)
Quarter: 2015Q1

REPORT INFORMATION
  Report Type: Report from Study
  Country: US (occurrence: None)
  Receive Date: 20150309
  Receipt Date: 20150309
  Transmission Date: 20150721
  Serious: Yes (Death)
  Sender: FDA-Public Use
  Company Number: KAD201503-000431

PATIENT
  Age: 59 Year
  Sex: Male
  Weight: 62.59 kg

DRUGS (12)
  1. RIBASPHERE [Suspect]
     Active Substance: RIBAVIRIN
     Indication: HEPATITIS C
     Dosage: 3 IN AM AND 2 IN PM
     Route: 048
     Dates: start: 20150218, end: 20150221
  2. LACTULOSE. [Concomitant]
     Active Substance: LACTULOSE
  3. CARAFATE [Concomitant]
     Active Substance: SUCRALFATE
  4. NIFEDIPINE. [Concomitant]
     Active Substance: NIFEDIPINE
  5. VIEKIRA PAK [Suspect]
     Active Substance: DASABUVIR\OMBITASVIR\PARITAPREVIR\RITONAVIR
     Indication: HEPATIC CIRRHOSIS
     Dosage: TABLET, 2 PINK TABS IN AM; 1 BEIGE IN AM AND PM
     Route: 048
     Dates: start: 20150218, end: 20150221
  6. PANTOPRAZOLE [Concomitant]
     Active Substance: PANTOPRAZOLE SODIUM
  7. AGGRENOX (ASASANTIN) (ACETYLSALICYLIC ACID, DIPYRIDAMOLE) [Concomitant]
  8. SODIUM BICARBONATE. [Concomitant]
     Active Substance: SODIUM BICARBONATE
  9. METOCLOPRAMIDE. [Concomitant]
     Active Substance: METOCLOPRAMIDE
  10. VIEKIRA PAK [Suspect]
     Active Substance: DASABUVIR\OMBITASVIR\PARITAPREVIR\RITONAVIR
     Indication: HEPATITIS C
     Dosage: TABLET, 2 PINK TABS IN AM; 1 BEIGE IN AM AND PM
     Route: 048
     Dates: start: 20150218, end: 20150221
  11. PREDNISONE. [Concomitant]
     Active Substance: PREDNISONE
  12. FUROSEMIDE. [Concomitant]
     Active Substance: FUROSEMIDE

REACTIONS (4)
  - Oxygen saturation decreased [None]
  - Dyspnoea [None]
  - Hypotension [None]
  - Loss of consciousness [None]

NARRATIVE: CASE EVENT DATE: 20150221
